FAERS Safety Report 13430205 (Version 1)
Quarter: 2017Q2

REPORT INFORMATION
  Report Type: Spontaneous
  Country: US (occurrence: US)
  Receive Date: 20170412
  Receipt Date: 20170412
  Transmission Date: 20170830
  Serious: Yes (Other)
  Sender: FDA-Public Use
  Company Number: US-DRREDDYS-USA/USA/16/0084891

PATIENT
  Age: 58 Year
  Sex: Male

DRUGS (1)
  1. AMOXICILLIN W/CLAVULANATE POTASSIUM 875 MG TABLETS [Suspect]
     Active Substance: AMOXICILLIN\CLAVULANATE POTASSIUM
     Indication: CELLULITIS
     Route: 065

REACTIONS (5)
  - Pyrexia [Recovering/Resolving]
  - Pruritus [Recovering/Resolving]
  - Leukocytosis [Recovering/Resolving]
  - Serum sickness-like reaction [Recovering/Resolving]
  - Arthralgia [Recovering/Resolving]
